FAERS Safety Report 4578244-8 (Version None)
Quarter: 2005Q1

REPORT INFORMATION
  Report Type: 
  Country: None (occurrence: None)
  Receive Date: 20050201
  Receipt Date: 20050201
  Transmission Date: 20050727
  Serious: Yes (Other)
  Sender: FDA-Public Use
  Company Number: None

PATIENT
  Sex: Female

DRUGS (1)
  1. ACIPHEX [Suspect]
     Indication: GASTROOESOPHAGEAL REFLUX DISEASE
     Dosage: 20 MG PO DAILY
     Route: 048
     Dates: start: 20040128, end: 20040501

REACTIONS (3)
  - PHOTOSENSITIVITY REACTION [None]
  - PRURITUS [None]
  - RASH [None]
